FAERS Safety Report 18883558 (Version 1)
Quarter: 2021Q1

REPORT INFORMATION
  Report Type: Spontaneous
  Country: US (occurrence: US)
  Receive Date: 20210211
  Receipt Date: 20210211
  Transmission Date: 20210420
  Serious: No
  Sender: FDA-Public Use
  Company Number: US-PERRIGO-20US014248

PATIENT
  Age: 37 Year
  Sex: Female
  Weight: 74.83 kg

DRUGS (5)
  1. ZANTAC [Concomitant]
     Active Substance: RANITIDINE HYDROCHLORIDE
     Indication: MAST CELL ACTIVATION SYNDROME
     Dosage: UNK, UNK
     Route: 048
     Dates: start: 201907, end: 202003
  2. CETIRIZINE HYDROCHLORIDE. [Suspect]
     Active Substance: CETIRIZINE HYDROCHLORIDE
     Indication: MAST CELL ACTIVATION SYNDROME
     Dosage: 10 MG, BID
     Route: 048
     Dates: start: 201905, end: 201907
  3. FAMOTIDINE. [Concomitant]
     Active Substance: FAMOTIDINE
     Indication: MAST CELL ACTIVATION SYNDROME
     Dosage: 20 MG, BID
     Route: 048
     Dates: start: 202003
  4. CETIRIZINE HYDROCHLORIDE. [Suspect]
     Active Substance: CETIRIZINE HYDROCHLORIDE
     Dosage: 20 MG EVERY MORNING, 10 MG NIGHTLY
     Route: 048
     Dates: start: 201907
  5. EPIPEN [Concomitant]
     Active Substance: EPINEPHRINE
     Indication: ANAPHYLACTIC REACTION
     Dosage: UNK, PRN
     Route: 030

REACTIONS (5)
  - Decreased appetite [Not Recovered/Not Resolved]
  - Hypersensitivity [Not Recovered/Not Resolved]
  - Nausea [Not Recovered/Not Resolved]
  - Off label use [Not Recovered/Not Resolved]
  - Overdose [Not Recovered/Not Resolved]

NARRATIVE: CASE EVENT DATE: 201905
